FAERS Safety Report 19542805 (Version 1)
Quarter: 2021Q3

REPORT INFORMATION
  Report Type: Spontaneous
  Country: DE (occurrence: DE)
  Receive Date: 20210713
  Receipt Date: 20210713
  Transmission Date: 20211014
  Serious: Yes (Hospitalization, Other)
  Sender: FDA-Public Use
  Company Number: DE-BAYER-2021-170129

PATIENT
  Age: 28 Year
  Sex: Female

DRUGS (1)
  1. JAYDESS [Suspect]
     Active Substance: LEVONORGESTREL
     Dosage: 14 ?G PER DAY CONTINUOUSLY
     Route: 015
     Dates: start: 20181015, end: 20210630

REACTIONS (5)
  - Intra-abdominal fluid collection [None]
  - Ectopic pregnancy with contraceptive device [None]
  - Haemorrhage in pregnancy [None]
  - Drug ineffective [None]
  - Pelvic pain [None]

NARRATIVE: CASE EVENT DATE: 20210627
